FAERS Safety Report 4374851-6 (Version None)
Quarter: 2004Q2

REPORT INFORMATION
  Report Type: 
  Country: None (occurrence: None)
  Receive Date: 20040604
  Receipt Date: 20040601
  Transmission Date: 20050107
  Serious: Yes (Hospitalization, Other)
  Sender: FDA-Public Use
  Company Number: 200415278BWH

PATIENT

DRUGS (1)
  1. AVELOX [Suspect]
     Dates: start: 20040301

REACTIONS (6)
  - CARDIAC FAILURE [None]
  - DRUG TOXICITY [None]
  - GENERALISED OEDEMA [None]
  - HEPATIC CIRRHOSIS [None]
  - HEPATIC FAILURE [None]
  - HEPATITIS [None]
